FAERS Safety Report 6572761-7 (Version None)
Quarter: 2010Q1

REPORT INFORMATION
  Report Type: 
  Country: None (occurrence: None)
  Receive Date: 20100205
  Receipt Date: 20100127
  Transmission Date: 20100710
  Serious: Yes (Life-Threatening, Congenital Anomaly)
  Sender: FDA-Public Use
  Company Number: GB-ABBOTT-09P-167-0601148-00

PATIENT

DRUGS (8)
  1. NORVIR [Suspect]
     Indication: DRUG EXPOSURE DURING PREGNANCY
     Route: 064
     Dates: start: 20081023
  2. NORVIR [Suspect]
     Dosage: INTRA-UTERINE
     Dates: start: 20060905, end: 20081023
  3. PREZISTA [Suspect]
     Indication: DRUG EXPOSURE DURING PREGNANCY
     Dosage: INTRA-UTERINE, PARENT ROUTE -ORAL
     Route: 064
     Dates: start: 20081023
  4. RALTEGRAVIR [Suspect]
     Indication: DRUG EXPOSURE DURING PREGNANCY
     Route: 064
     Dates: start: 20081023, end: 20090221
  5. ETRAVIRINE [Suspect]
     Indication: DRUG EXPOSURE DURING PREGNANCY
     Dosage: INTRA-UTERINE
     Route: 064
  6. ETRAVIRINE [Suspect]
     Route: 064
     Dates: start: 20081023
  7. TIPRANAVIR [Suspect]
     Indication: DRUG EXPOSURE DURING PREGNANCY
     Route: 064
     Dates: start: 20060905, end: 20081023
  8. TRUVADA [Suspect]
     Indication: DRUG EXPOSURE DURING PREGNANCY
     Route: 064
     Dates: start: 20060905, end: 20081023

REACTIONS (6)
  - ANAL ATRESIA [None]
  - BLADDER AGENESIS [None]
  - CONGENITAL GENITAL MALFORMATION [None]
  - DRUG EXPOSURE DURING PREGNANCY [None]
  - EXOMPHALOS [None]
  - GASTROINTESTINAL MALFORMATION [None]
